FAERS Safety Report 8795709 (Version 1)
Quarter: 2012Q4

REPORT INFORMATION
  Report Type: Report from Study
  Country: US (occurrence: US)
  Receive Date: 20120919
  Receipt Date: 20120919
  Transmission Date: 20130627
  Serious: Yes (Congenital Anomaly)
  Sender: FDA-Public Use
  Company Number: US-UCBSA-065616

PATIENT
  Age: 24 Hour
  Sex: Female
  Weight: 2.92 kg

DRUGS (3)
  1. KEPPRA [Suspect]
     Indication: EPILEPSY
     Dosage: TOTAL DAILY DOSE: 1500MG
     Route: 064
     Dates: end: 20110131
  2. LEVETIRACETAM [Suspect]
     Indication: EPILEPSY
     Dosage: 1000 - 1050MG/DAY
     Route: 064
     Dates: start: 20110131, end: 20110911
  3. LAMOTRIGINE [Concomitant]
     Indication: EPILEPSY
     Dosage: TOTAL DAILY DOSE: 500MG
     Route: 064
     Dates: end: 20110911

REACTIONS (2)
  - Atrial septal defect [Not Recovered/Not Resolved]
  - Foetal exposure during pregnancy [Recovered/Resolved]
